FAERS Safety Report 5744102-6 (Version None)
Quarter: 2008Q2

REPORT INFORMATION
  Report Type: 
  Country: None (occurrence: None)
  Receive Date: 20080520
  Receipt Date: 20080512
  Transmission Date: 20081010
  Serious: Yes (Hospitalization)
  Sender: FDA-Public Use
  Company Number: B0359556A

PATIENT
  Age: 49 Year
  Sex: Male

DRUGS (20)
  1. SEROXAT [Suspect]
     Dates: start: 20020429, end: 20020101
  2. ACETAMINOPHEN [Suspect]
     Route: 065
  3. IBUPROFEN [Suspect]
     Route: 065
  4. PREDNISOLONE [Suspect]
     Indication: COLITIS
     Dates: start: 19950101
  5. LOFEPRAMINE [Suspect]
     Dates: start: 20030301, end: 20030301
  6. ZISPIN [Suspect]
     Dates: start: 20031101, end: 20040201
  7. ANTABUSE [Suspect]
     Dates: start: 20040501, end: 20040601
  8. VALPROATE SODIUM [Suspect]
     Dates: start: 20060601, end: 20060701
  9. FLUOXETINE [Suspect]
     Dates: start: 20070501, end: 20070601
  10. CLONAZEPAM [Concomitant]
     Dates: start: 20030101, end: 20030501
  11. OLANZAPINE [Concomitant]
     Dates: start: 20030501, end: 20030501
  12. TEMAZEPAM [Concomitant]
     Dates: start: 20030601
  13. VENLAFAXINE HCL [Concomitant]
     Dates: start: 20030701, end: 20030701
  14. OLANZAPINE [Concomitant]
     Dates: start: 20040501, end: 20040501
  15. NAPROXEN [Concomitant]
     Indication: ARTHRITIS
     Dates: start: 20041001, end: 20041101
  16. DICLOFENAC [Concomitant]
     Indication: ARTHRITIS
     Dates: start: 20041101
  17. AMITRIPTYLINE HCL [Concomitant]
     Dates: start: 20050201, end: 20050301
  18. DULOXETINE [Concomitant]
     Dates: start: 20051201
  19. CARBAMAZEPINE [Concomitant]
     Dates: start: 20060201
  20. ZOPICLONE [Concomitant]
     Dates: start: 20061101

REACTIONS (10)
  - ABNORMAL DREAMS [None]
  - AGGRESSION [None]
  - ANXIETY [None]
  - DISTURBANCE IN ATTENTION [None]
  - EMOTIONAL DISORDER [None]
  - IRRITABILITY [None]
  - NIGHTMARE [None]
  - OVERDOSE [None]
  - SUICIDE ATTEMPT [None]
  - WITHDRAWAL SYNDROME [None]
